FAERS Safety Report 12212393 (Version 1)
Quarter: 2016Q1

REPORT INFORMATION
  Report Type: Spontaneous
  Country: US (occurrence: US)
  Receive Date: 20160326
  Receipt Date: 20160326
  Transmission Date: 20160526
  Serious: No
  Sender: FDA-Public Use
  Company Number: US-009507513-1603USA009713

PATIENT
  Age: 68 Year
  Sex: Female

DRUGS (2)
  1. NASONEX [Suspect]
     Active Substance: MOMETASONE FUROATE
     Indication: NASAL CONGESTION
  2. NASONEX [Suspect]
     Active Substance: MOMETASONE FUROATE
     Indication: BRONCHITIS
     Dosage: UNK
     Route: 045
     Dates: start: 20160315, end: 20160318

REACTIONS (2)
  - Headache [Recovered/Resolved]
  - Epistaxis [Recovered/Resolved]

NARRATIVE: CASE EVENT DATE: 20160315
